FAERS Safety Report 10581926 (Version 1)
Quarter: 2014Q4

REPORT INFORMATION
  Report Type: Spontaneous
  Country: HR (occurrence: HR)
  Receive Date: 20141113
  Receipt Date: 20141113
  Transmission Date: 20150529
  Serious: Yes (Death)
  Sender: FDA-Public Use
  Company Number: HR-PFIZER INC-2014309317

PATIENT
  Sex: Female

DRUGS (1)
  1. ZYVOXID [Suspect]
     Active Substance: LINEZOLID
     Indication: INFECTION
     Dosage: UNK

REACTIONS (1)
  - Epilepsy [Fatal]
